FAERS Safety Report 8678619 (Version 2)
Quarter: 2013Q2

REPORT INFORMATION
  Report Type: Spontaneous
  Country: US (occurrence: US)
  Receive Date: 20120723
  Receipt Date: 20130402
  Transmission Date: 20140414
  Serious: No
  Sender: FDA-Public Use
  Company Number: US-ASTRAZENECA-2012SE47069

PATIENT
  Age: 87 Year
  Sex: Female
  Weight: 63.5 kg

DRUGS (9)
  1. SYMBICORT [Suspect]
     Indication: ASTHMA
     Dosage: 80/4.5, 2 PUFF TWICE A  DAY
     Route: 055
  2. SYMBICORT [Suspect]
     Indication: ASTHMA
     Dosage: 80/4.5, 1 PUFF PER DAY
     Route: 055
     Dates: start: 201202
  3. METOPROLOL SUCCINATE [Suspect]
     Indication: BLOOD PRESSURE
     Route: 048
     Dates: end: 201205
  4. METOPROLOL SUCCINATE [Suspect]
     Indication: BLOOD PRESSURE
     Route: 048
     Dates: start: 201205, end: 20130310
  5. DIOVAN [Concomitant]
     Indication: BLOOD PRESSURE
  6. LIVALO [Concomitant]
     Indication: BLOOD CHOLESTEROL
  7. VERAPAMIL [Concomitant]
     Indication: BLOOD CHOLESTEROL
  8. HYDROCODONE [Concomitant]
     Indication: PAIN
  9. AMLODIPINE [Concomitant]
     Indication: PAIN

REACTIONS (12)
  - Blood cholesterol abnormal [Unknown]
  - Weight decreased [Unknown]
  - Hypoaesthesia [Unknown]
  - Paraesthesia [Unknown]
  - Local swelling [Unknown]
  - Hypertension [Unknown]
  - Arthralgia [Recovered/Resolved]
  - Blood pressure fluctuation [Unknown]
  - Muscle spasms [Recovered/Resolved]
  - Alopecia [Unknown]
  - Off label use [Unknown]
  - Intentional drug misuse [Unknown]
